FAERS Safety Report 5597055-8 (Version None)
Quarter: 2007Q4

REPORT INFORMATION
  Report Type: 
  Country: None (occurrence: None)
  Receive Date: 20071221
  Receipt Date: 20071120
  Transmission Date: 20080405
  Serious: No
  Sender: FDA-Public Use
  Company Number: SPV1-2007-05013

PATIENT
  Sex: Male
  Weight: 65.8 kg

DRUGS (2)
  1. VYVANSE [Suspect]
     Indication: ATTENTION DEFICIT/HYPERACTIVITY DISORDER
     Dosage: 1X/DAY:QD, ORAL ; 1X/DAY:QD, ORAL
     Route: 048
     Dates: start: 20070901, end: 20070101
  2. VYVANSE [Suspect]
     Indication: ATTENTION DEFICIT/HYPERACTIVITY DISORDER
     Dosage: 1X/DAY:QD, ORAL ; 1X/DAY:QD, ORAL
     Route: 048
     Dates: start: 20070101, end: 20071101

REACTIONS (5)
  - ABNORMAL BEHAVIOUR [None]
  - AGITATION [None]
  - DEPRESSED MOOD [None]
  - HALLUCINATION, AUDITORY [None]
  - PARANOIA [None]
